FAERS Safety Report 7134929-0 (Version None)
Quarter: 2010Q4

REPORT INFORMATION
  Report Type: 
  Country: None (occurrence: None)
  Receive Date: 20101129
  Receipt Date: 20101129
  Transmission Date: 20110411
  Serious: No
  Sender: FDA-Public Use
  Company Number: None

PATIENT
  Sex: Male
  Weight: 56.246 kg

DRUGS (13)
  1. ONDANSETRON [Suspect]
     Indication: NAUSEA
     Dosage: 4MG PRN SL
     Route: 060
     Dates: start: 20100809, end: 20100809
  2. OXACILLIN [Concomitant]
  3. FLOVENT [Concomitant]
  4. FLONASE [Concomitant]
  5. ALBUTEROL [Concomitant]
  6. HYPERTONIC SALINE [Concomitant]
  7. PULMOZYME [Concomitant]
  8. LORATADINE [Concomitant]
  9. PREVACID [Concomitant]
  10. ABDEK [Concomitant]
  11. CREON [Concomitant]
  12. MIRALAX [Concomitant]
  13. TOBI [Concomitant]

REACTIONS (5)
  - NAUSEA [None]
  - PRODUCT LABEL ISSUE [None]
  - PRODUCT PACKAGING ISSUE [None]
  - PRODUCT SUBSTITUTION ISSUE [None]
  - VOMITING [None]
